FAERS Safety Report 9518633 (Version 1)
Quarter: 2013Q3

REPORT INFORMATION
  Report Type: Spontaneous
  Country: MX (occurrence: MX)
  Receive Date: 20130912
  Receipt Date: 20130912
  Transmission Date: 20140515
  Serious: Yes (Other)
  Sender: FDA-Public Use
  Company Number: PHHY2013MX100139

PATIENT
  Age: 49 Year
  Sex: Female

DRUGS (1)
  1. CO-DIOVAN [Suspect]
     Indication: HYPERTENSION
     Dosage: 1 DF (80/12.5MG), DAILY
     Route: 048

REACTIONS (3)
  - Diabetes mellitus [Unknown]
  - Thyroid disorder [Unknown]
  - Influenza [Not Recovered/Not Resolved]
